FAERS Safety Report 19795940 (Version 1)
Quarter: 2021Q3

REPORT INFORMATION
  Report Type: Spontaneous
  Country: US (occurrence: US)
  Receive Date: 20210902
  Receipt Date: 20210902
  Transmission Date: 20211014
  Serious: Yes (Hospitalization)
  Sender: FDA-Public Use
  Company Number: None

PATIENT
  Sex: Female

DRUGS (11)
  1. EVENITY [Suspect]
     Active Substance: ROMOSOZUMAB-AQQG
     Indication: OSTEOPOROTIC FRACTURE
     Route: 058
     Dates: start: 20210203, end: 20210901
  2. OXYBUTYNIN. [Concomitant]
     Active Substance: OXYBUTYNIN CHLORIDE
  3. POTASSIUM CHLORIDE. [Concomitant]
     Active Substance: POTASSIUM CHLORIDE
  4. NATURE?THROI [Concomitant]
  5. TRAMADOL HCL [Concomitant]
     Active Substance: TRAMADOL HYDROCHLORIDE
  6. GABAPENTIN. [Concomitant]
     Active Substance: GABAPENTIN
  7. FUROSSEMIDE [Concomitant]
  8. MUCINEX [Concomitant]
     Active Substance: GUAIFENESIN
  9. FAMOTIDINE. [Concomitant]
     Active Substance: FAMOTIDINE
  10. NASACORT ALR [Concomitant]
  11. TYLENOL [Concomitant]
     Active Substance: ACETAMINOPHEN

REACTIONS (1)
  - General physical health deterioration [None]
